FAERS Safety Report 4401404-3 (Version None)
Quarter: 2004Q3

REPORT INFORMATION
  Report Type: 
  Country: None (occurrence: None)
  Receive Date: 20040907
  Receipt Date: 20040420
  Transmission Date: 20050211
  Serious: No
  Sender: FDA-Public Use
  Company Number: US-BRISTOL-MYERS SQUIBB COMPANY-12566410

PATIENT
  Age: 69 Year
  Sex: Male
  Weight: 95 kg

DRUGS (9)
  1. COUMADIN [Suspect]
     Indication: HEART VALVE REPLACEMENT
     Route: 048
     Dates: start: 20040301
  2. COUMADIN [Suspect]
     Route: 048
     Dates: start: 20040301
  3. XANAX [Concomitant]
  4. PRILOSEC [Concomitant]
  5. ZOCOR [Concomitant]
  6. MULTI-VITAMIN [Concomitant]
  7. AMIODARONE HCL [Concomitant]
  8. CELEBREX [Concomitant]
  9. TRAMADOL [Concomitant]

REACTIONS (1)
  - DYSGEUSIA [None]
